FAERS Safety Report 22286850 (Version 1)
Quarter: 2023Q2

REPORT INFORMATION
  Report Type: Spontaneous
  Country: UA (occurrence: UA)
  Receive Date: 20230505
  Receipt Date: 20230505
  Transmission Date: 20230722
  Serious: Yes (Other)
  Sender: FDA-Public Use
  Company Number: UA-002147023-NVSC2023UA102525

PATIENT
  Sex: Female

DRUGS (7)
  1. MYCOPHENOLATE SODIUM [Suspect]
     Active Substance: MYCOPHENOLATE SODIUM
     Indication: Liver transplant
     Dosage: 720 MG, QD
     Route: 065
     Dates: start: 20210217
  2. TACROLIMUS [Suspect]
     Active Substance: TACROLIMUS
     Indication: Liver transplant
     Dosage: UNK (8-10 NG/ML)
     Route: 065
     Dates: start: 20210217
  3. PREDNISOLONE [Suspect]
     Active Substance: PREDNISOLONE
     Indication: Liver transplant
     Dosage: 10 MG/KG (BODY WEIGHT INTRAOPERATIVELY)
     Route: 042
     Dates: start: 20210216, end: 20210216
  4. PREDNISOLONE [Suspect]
     Active Substance: PREDNISOLONE
     Dosage: 1 MG/KG (BODY WEIGHT ON DAY 1-3)
     Route: 042
     Dates: start: 20210217, end: 20210219
  5. PREDNISOLONE [Suspect]
     Active Substance: PREDNISOLONE
     Dosage: 0.5 MG/KG (BODY WEIGHT ON DAY 4-6)
     Route: 042
     Dates: start: 20210220, end: 20210222
  6. PREDNISOLONE [Suspect]
     Active Substance: PREDNISOLONE
     Dosage: 0.3 MG/KG (BODY WEIGHT AFTER DAY 7)
     Route: 042
     Dates: start: 20210223
  7. PREDNISOLONE [Suspect]
     Active Substance: PREDNISOLONE
     Dosage: UNK (SWITCHED TO ORAL FORMULATION ON DAY 8)
     Route: 048
     Dates: start: 20210224

REACTIONS (2)
  - Liver transplant rejection [Recovered/Resolved]
  - Product use in unapproved indication [Unknown]

NARRATIVE: CASE EVENT DATE: 20210223
